FAERS Safety Report 9715584 (Version 2)
Quarter: 2014Q1

REPORT INFORMATION
  Report Type: Spontaneous
  Country: US (occurrence: US)
  Receive Date: 20131127
  Receipt Date: 20140206
  Transmission Date: 20141002
  Serious: No
  Sender: FDA-Public Use
  Company Number: US-B.I. PHARMACEUTICALS,INC./RIDGEFIELD-2013-BI-37770BP

PATIENT
  Age: 69 Year
  Sex: Female
  Weight: 79 kg

DRUGS (4)
  1. SPIRIVA [Suspect]
     Indication: CHRONIC OBSTRUCTIVE PULMONARY DISEASE
     Dosage: 18 MCG
     Route: 055
     Dates: start: 201304
  2. QUINIPRIL/HCTZ [Concomitant]
     Indication: HYPERTENSION
     Dosage: DOSE PER APPLICATION: 20MG/25MG; DAILY DOSE: 20MG/25MG
     Route: 048
     Dates: start: 2010
  3. PROPANOLOL [Concomitant]
     Indication: TREMOR
     Dosage: 60 MG
     Route: 048
     Dates: start: 1970
  4. LEVOTHYROXINE [Concomitant]
     Indication: THYROID DISORDER
     Dosage: 50 MG
     Route: 048
     Dates: start: 1970

REACTIONS (2)
  - Dyspnoea exertional [Recovered/Resolved]
  - Product quality issue [Unknown]
